FAERS Safety Report 9707356 (Version 6)
Quarter: 2014Q1

REPORT INFORMATION
  Report Type: Spontaneous
  Country: JP (occurrence: JP)
  Receive Date: 20131125
  Receipt Date: 20140312
  Transmission Date: 20141002
  Serious: Yes (Disabling, Other)
  Sender: FDA-Public Use
  Company Number: JP-ELI_LILLY_AND_COMPANY-JP201310007503

PATIENT
  Age: 73 Year
  Sex: Female

DRUGS (3)
  1. FORTEO [Suspect]
     Indication: OSTEOPOROSIS
     Dosage: 20 UG, QD
     Route: 058
     Dates: start: 20130930, end: 20131022
  2. TRAMADOL HYDROCHLORIDE AND ACETAMINOPHEN [Concomitant]
  3. TAKEPRON [Concomitant]

REACTIONS (2)
  - Henoch-Schonlein purpura [Recovering/Resolving]
  - Renal disorder [Unknown]
